FAERS Safety Report 6562108-4 (Version None)
Quarter: 2010Q1

REPORT INFORMATION
  Report Type: 
  Country: None (occurrence: None)
  Receive Date: 20100130
  Receipt Date: 20091229
  Transmission Date: 20100710
  Serious: No
  Sender: FDA-Public Use
  Company Number: US-ABBOTT-09P-163-0606141-00

PATIENT
  Sex: Male
  Weight: 77.18 kg

DRUGS (3)
  1. HUMIRA [Suspect]
     Indication: CROHN'S DISEASE
     Dosage: 160MG; DAY 1
     Dates: start: 20090821, end: 20090821
  2. HUMIRA [Suspect]
     Dosage: DAY 15; 80MG
  3. HUMIRA [Suspect]
     Dosage: DAY 29

REACTIONS (2)
  - DRUG INEFFECTIVE [None]
  - PAIN [None]
